FAERS Safety Report 8791765 (Version 2)
Quarter: 2012Q4

REPORT INFORMATION
  Report Type: 
  Country: US (occurrence: US)
  Receive Date: 20120918
  Receipt Date: 20121116
  Transmission Date: 20130627
  Serious: Yes (Hospitalization, Other)
  Sender: FDA-Public Use
  Company Number: US-ASTRAZENECA-2012SE70160

PATIENT
  Age: 63 Year
  Sex: Female

DRUGS (19)
  1. LISINOPRIL [Suspect]
     Route: 048
  2. PRILOSEC [Suspect]
     Route: 048
  3. PRILOSEC OTC [Suspect]
     Route: 048
  4. CRESTOR [Suspect]
     Route: 048
  5. CRESTOR [Suspect]
     Route: 048
  6. TYLENOL [Concomitant]
     Indication: HEADACHE
     Route: 048
  7. TYLENOL [Concomitant]
     Indication: PAIN
     Route: 048
  8. PROAIR [Concomitant]
  9. VENTOLIN [Concomitant]
  10. PROVENTIL [Concomitant]
     Dosage: 2 PUFFS, EVERY 6 HOURS, AS NEEDED
     Route: 055
  11. ASPIRIN [Concomitant]
     Route: 048
  12. CELEXA [Concomitant]
     Route: 048
  13. FLEXERIL [Concomitant]
     Indication: MUSCLE SPASMS
     Route: 048
  14. FERROUS SULPHATE [Concomitant]
     Route: 048
  15. FLOVENT [Concomitant]
     Dosage: 1 PUFF, BID
     Route: 055
  16. REGLAN [Concomitant]
     Indication: VOMITING
     Route: 048
  17. REGLAN [Concomitant]
     Indication: NAUSEA
     Route: 048
  18. DITROPAN XL [Concomitant]
     Route: 048
  19. AMBIEN [Concomitant]
     Indication: SLEEP DISORDER
     Route: 048

REACTIONS (5)
  - Brain injury [Unknown]
  - Drug dose omission [Unknown]
  - Nervous system disorder [Unknown]
  - Malaise [Unknown]
  - Oedema [Unknown]
